FAERS Safety Report 5778118-0 (Version None)
Quarter: 2008Q2

REPORT INFORMATION
  Report Type: 
  Country: None (occurrence: None)
  Receive Date: 20080618
  Receipt Date: 20080618
  Transmission Date: 20081010
  Serious: Yes (Life-Threatening, Hospitalization)
  Sender: FDA-Public Use
  Company Number: None

PATIENT
  Age: 59 Year
  Sex: Male
  Weight: 85.2762 kg

DRUGS (1)
  1. NEUTROGENA ULTRA SHEER SUNBLOCK SPF 85 [Suspect]
     Indication: PROPHYLAXIS AGAINST SOLAR RADIATION
     Dosage: TOPICAL 1X
     Dates: start: 20080520

REACTIONS (3)
  - ANGIOEDEMA [None]
  - CELLULITIS [None]
  - EPIDERMAL NECROSIS [None]
